FAERS Safety Report 4654080-9 (Version None)
Quarter: 2005Q2

REPORT INFORMATION
  Report Type: 
  Country: None (occurrence: None)
  Receive Date: 20050504
  Receipt Date: 20050419
  Transmission Date: 20051028
  Serious: Yes (Hospitalization)
  Sender: FDA-Public Use
  Company Number: GBR-2005-0001665

PATIENT
  Sex: Male

DRUGS (1)
  1. DIHYDROCODEINE BITARTRATE INJ [Suspect]
     Dosage: 280 MG, DAILY, TRANSPLACENTAL
     Route: 064
     Dates: end: 20050412

REACTIONS (4)
  - DRUG EXPOSURE DURING PREGNANCY [None]
  - DRUG WITHDRAWAL SYNDROME NEONATAL [None]
  - FEEDING PROBLEM IN NEWBORN [None]
  - VOMITING NEONATAL [None]
